FAERS Safety Report 8494428-0 (Version None)
Quarter: 2012Q3

REPORT INFORMATION
  Report Type: 
  Country: None (occurrence: None)
  Receive Date: 20120709
  Receipt Date: 20120629
  Transmission Date: 20120928
  Serious: Yes (Other)
  Sender: FDA-Public Use
  Company Number: US-US-EMD SERONO, INC.-7035540

PATIENT
  Sex: Female

DRUGS (4)
  1. REBIF [Suspect]
     Route: 058
  2. IRON [Concomitant]
     Indication: IRON DEFICIENCY ANAEMIA
  3. REBIF [Suspect]
     Indication: MULTIPLE SCLEROSIS
     Route: 058
     Dates: start: 20101213
  4. THYROID TAB [Concomitant]
     Indication: HYPOTHYROIDISM

REACTIONS (1)
  - OPTIC NEURITIS [None]
